FAERS Safety Report 9031902 (Version 7)
Quarter: 2015Q1

REPORT INFORMATION
  Report Type: Report from Study
  Country: FR (occurrence: FR)
  Receive Date: 20130125
  Receipt Date: 20150113
  Transmission Date: 20150721
  Serious: Yes (Hospitalization, Other)
  Sender: FDA-Public Use
  Company Number: FR-BRISTOL-MYERS SQUIBB COMPANY-17304932

PATIENT
  Age: 57 Year
  Sex: Female

DRUGS (4)
  1. DONORMYL [Concomitant]
     Active Substance: DOXYLAMINE SUCCINATE
     Dosage: UNK UNK, QD
     Route: 048
     Dates: start: 20130103
  2. IPILIMUMAB [Suspect]
     Active Substance: IPILIMUMAB
     Indication: METASTATIC MALIGNANT MELANOMA
     Dosage: 10 MG/KG, UNK
     Route: 042
     Dates: start: 20121119
  3. XANAX [Concomitant]
     Active Substance: ALPRAZOLAM
     Dosage: .25 MG, QD
     Route: 048
     Dates: start: 20121109
  4. KEPPRA [Concomitant]
     Active Substance: LEVETIRACETAM
     Dosage: 1 G, QD
     Route: 048
     Dates: start: 20121109

REACTIONS (6)
  - Haematochezia [Recovered/Resolved]
  - Hypophysitis [Not Recovered/Not Resolved]
  - Volvulus [Recovered/Resolved]
  - Colitis [Unknown]
  - Diarrhoea [Recovered/Resolved]
  - Pyrexia [Recovered/Resolved]

NARRATIVE: CASE EVENT DATE: 20130115
